FAERS Safety Report 8020971-4 (Version None)
Quarter: 2011Q4

REPORT INFORMATION
  Report Type: 
  Country: None (occurrence: None)
  Receive Date: 20111228
  Receipt Date: 20111216
  Transmission Date: 20120403
  Serious: Yes (Hospitalization, Other)
  Sender: FDA-Public Use
  Company Number: 20110874

PATIENT
  Age: 50 Year
  Sex: Female

DRUGS (1)
  1. VENOFER [Suspect]
     Dosage: 1 GRAM/DILUTION
     Dates: start: 20110617

REACTIONS (14)
  - ABDOMINAL PAIN [None]
  - UNEVALUABLE EVENT [None]
  - MEDICATION ERROR [None]
  - OLIGURIA [None]
  - LEUKOPENIA [None]
  - WRONG DRUG ADMINISTERED [None]
  - TACHYCARDIA [None]
  - OVERDOSE [None]
  - HYPERHIDROSIS [None]
  - VOMITING [None]
  - PAIN IN EXTREMITY [None]
  - BLOOD IRON INCREASED [None]
  - DIARRHOEA [None]
  - ASPARTATE AMINOTRANSFERASE INCREASED [None]
